FAERS Safety Report 23719562 (Version 1)
Quarter: 2024Q2

REPORT INFORMATION
  Report Type: Spontaneous
  Country: US (occurrence: None)
  Receive Date: 20240408
  Receipt Date: 20240408
  Transmission Date: 20240716
  Serious: Yes (Other)
  Sender: FDA-Public Use
  Company Number: None

PATIENT
  Age: 74 Year
  Sex: Male
  Weight: 143.3 kg

DRUGS (2)
  1. CARBOPLATIN [Suspect]
     Active Substance: CARBOPLATIN
     Route: 042
     Dates: start: 20231122, end: 20240327
  2. PACLITAXEL [Suspect]
     Active Substance: PACLITAXEL
     Route: 042
     Dates: start: 20231122, end: 20240327

REACTIONS (8)
  - Flushing [None]
  - Cough [None]
  - Infusion related reaction [None]
  - Chest pain [None]
  - Rash [None]
  - Rash erythematous [None]
  - Wheezing [None]
  - Therapy cessation [None]

NARRATIVE: CASE EVENT DATE: 20240327
